FAERS Safety Report 20583586 (Version 1)
Quarter: 2022Q1

REPORT INFORMATION
  Report Type: Spontaneous
  Country: TW (occurrence: TW)
  Receive Date: 20220311
  Receipt Date: 20220311
  Transmission Date: 20220424
  Serious: No
  Sender: FDA-Public Use
  Company Number: TW-LUPIN PHARMACEUTICALS INC.-2022-03315

PATIENT
  Age: 7 Year
  Sex: Male

DRUGS (4)
  1. GABAPENTIN [Suspect]
     Active Substance: GABAPENTIN
     Indication: Neuralgia
     Dosage: 10 MILLIGRAM/KILOGRAM, TID ((RECEIVED GABAPENTIN 10 MG/KG/DAY EVERY 8HOURS))
     Route: 048
     Dates: start: 20201004
  2. IBUPROFEN [Suspect]
     Active Substance: IBUPROFEN
     Indication: Neuralgia
     Dosage: 15 MILLIGRAM/KILOGRAM, QID (RECEIVED EVERY 6 HOURS)
     Route: 065
     Dates: start: 20201004
  3. ACYCLOVIR [Concomitant]
     Active Substance: ACYCLOVIR
     Indication: Herpes zoster
     Dosage: 10 MILLIGRAM/KILOGRAM (RECEIVED ACICLOVIR 10 MG/KG/DOSE EVERY 8 H)
     Route: 042
     Dates: start: 20201004
  4. VARICELLA VACCINE LIVE ATTENUATED [Concomitant]
     Indication: Immunisation
     Dosage: UNK
     Route: 065

REACTIONS (2)
  - Drug ineffective for unapproved indication [Unknown]
  - Off label use [Unknown]

NARRATIVE: CASE EVENT DATE: 20201001
